FAERS Safety Report 5513932-8 (Version None)
Quarter: 2007Q4

REPORT INFORMATION
  Report Type: 
  Country: None (occurrence: None)
  Receive Date: 20071113
  Receipt Date: 20071108
  Transmission Date: 20080405
  Serious: Yes (Other)
  Sender: FDA-Public Use
  Company Number: JP-BRISTOL-MYERS SQUIBB COMPANY-13977533

PATIENT
  Age: 7 Decade
  Sex: Male

DRUGS (3)
  1. CISPLATIN [Suspect]
     Indication: OESOPHAGEAL CARCINOMA
     Route: 041
  2. RADIOTHERAPY [Suspect]
     Indication: OESOPHAGEAL CARCINOMA
  3. FLUOROURACIL [Concomitant]
     Indication: OESOPHAGEAL CARCINOMA

REACTIONS (1)
  - GASTRIC MUCOSAL LESION [None]
